FAERS Safety Report 4405552-3 (Version None)
Quarter: 2004Q3

REPORT INFORMATION
  Report Type: 
  Country: None (occurrence: None)
  Receive Date: 20040723
  Receipt Date: 20030929
  Transmission Date: 20050211
  Serious: No
  Sender: FDA-Public Use
  Company Number: US-GLAXOSMITHKLINE-A0427865A

PATIENT
  Age: 54 Year
  Sex: Female

DRUGS (8)
  1. AVANDIA [Suspect]
     Dosage: 4MG PER DAY
     Route: 048
     Dates: start: 20030701, end: 20030901
  2. SYNTHROID [Concomitant]
  3. DYAZIDE [Concomitant]
  4. ZANTAC [Concomitant]
  5. NAPROSYN [Concomitant]
  6. NOVOLIN [Concomitant]
  7. PAXIL [Concomitant]
  8. ASPIRIN [Concomitant]

REACTIONS (7)
  - ABDOMINAL DISTENSION [None]
  - DYSPNOEA [None]
  - FATIGUE [None]
  - OEDEMA PERIPHERAL [None]
  - SKIN ODOUR ABNORMAL [None]
  - SOMNOLENCE [None]
  - WEIGHT INCREASED [None]
